FAERS Safety Report 9498336 (Version 2)
Quarter: 2013Q3

REPORT INFORMATION
  Report Type: Spontaneous
  Country: US (occurrence: US)
  Receive Date: 20130904
  Receipt Date: 20130918
  Transmission Date: 20140515
  Serious: No
  Sender: FDA-Public Use
  Company Number: US-009507513-1309USA000930

PATIENT
  Sex: Male
  Weight: 57.25 kg

DRUGS (2)
  1. MIRALAX [Suspect]
     Indication: CONSTIPATION
     Dosage: 8.5 G, QD
     Route: 048
     Dates: start: 201305, end: 201308
  2. MIRALAX [Suspect]
     Dosage: 17 G, QD
     Route: 048

REACTIONS (5)
  - Underdose [Unknown]
  - Drug administered to patient of inappropriate age [Unknown]
  - Incorrect drug administration duration [Unknown]
  - Expired drug administered [Unknown]
  - Off label use [Unknown]
